FAERS Safety Report 16738340 (Version 1)
Quarter: 2019Q3

REPORT INFORMATION
  Report Type: Spontaneous
  Country: TH (occurrence: TH)
  Receive Date: 20190825
  Receipt Date: 20190825
  Transmission Date: 20191005
  Serious: Yes (Other)
  Sender: FDA-Public Use
  Company Number: TH-009507513-1908THA007616

PATIENT
  Age: 95 Year
  Sex: Female

DRUGS (1)
  1. ZERBAXA [Suspect]
     Active Substance: CEFTOLOZANE SULFATE\TAZOBACTAM SODIUM
     Indication: PNEUMONIA
     Dosage: 750 MILLIGRAM, Q8H

REACTIONS (3)
  - Pemphigoid [Unknown]
  - Eosinophil count increased [Unknown]
  - Urticaria [Unknown]
